FAERS Safety Report 4626275-1 (Version None)
Quarter: 2005Q2

REPORT INFORMATION
  Report Type: 
  Country: None (occurrence: None)
  Receive Date: 20050331
  Receipt Date: 20040301
  Transmission Date: 20051028
  Serious: Yes (Other)
  Sender: FDA-Public Use
  Company Number: 200411044BCC

PATIENT
  Age: 50 Year
  Sex: Male
  Weight: 79.3795 kg

DRUGS (4)
  1. ALEVE (CAPLET) [Suspect]
     Indication: ARTHRALGIA
     Dosage: 440 MG, ONCE, ORAL
     Route: 048
     Dates: start: 20040228
  2. BEESWAX EXTRACT [Concomitant]
  3. VITAMIN E [Concomitant]
  4. MULTIVITAMIN AND MINERAL SUPPLEMENT [Concomitant]

REACTIONS (4)
  - HYPERSENSITIVITY [None]
  - SWELLING FACE [None]
  - SWOLLEN TONGUE [None]
  - URTICARIA [None]
